FAERS Safety Report 14553926 (Version 1)
Quarter: 2018Q1

REPORT INFORMATION
  Report Type: Spontaneous
  Country: NL (occurrence: NL)
  Receive Date: 20180220
  Receipt Date: 20180220
  Transmission Date: 20180509
  Serious: Yes (Life-Threatening, Other)
  Sender: FDA-Public Use
  Company Number: NL-NATCO PHARMA-2018NAT00051

PATIENT
  Age: 49 Year
  Sex: Male

DRUGS (6)
  1. ONDANSETRON [Suspect]
     Active Substance: ONDANSETRON
     Indication: VOMITING
  2. DOFETILIDE. [Suspect]
     Active Substance: DOFETILIDE
     Dosage: 1000 ?G, 2X/DAY
     Route: 065
  3. FAMOTIDINE. [Suspect]
     Active Substance: FAMOTIDINE
     Indication: NAUSEA
     Route: 042
  4. FAMOTIDINE. [Suspect]
     Active Substance: FAMOTIDINE
     Indication: VOMITING
  5. ONDANSETRON [Suspect]
     Active Substance: ONDANSETRON
     Indication: NAUSEA
     Route: 042
  6. ALCOHOL. [Suspect]
     Active Substance: ALCOHOL
     Route: 048

REACTIONS (4)
  - Drug interaction [Unknown]
  - Electrocardiogram QT prolonged [Unknown]
  - Cardiac arrest [Recovered/Resolved]
  - Ventricular fibrillation [Unknown]
